FAERS Safety Report 5335575-1 (Version None)
Quarter: 2007Q2

REPORT INFORMATION
  Report Type: 
  Country: None (occurrence: None)
  Receive Date: 20070526
  Receipt Date: 20070517
  Transmission Date: 20071010
  Serious: Yes (Other)
  Sender: FDA-Public Use
  Company Number: GB-PFIZER INC-2007041195

PATIENT
  Age: 38 Year
  Sex: Female
  Weight: 70 kg

DRUGS (3)
  1. LYRICA [Suspect]
     Route: 048
  2. CODEINE PHOSPHATE [Concomitant]
     Indication: PAIN
     Route: 048
  3. FLUOXETINE [Concomitant]
     Indication: DEPRESSION
     Route: 048

REACTIONS (3)
  - AMENORRHOEA [None]
  - METRORRHAGIA [None]
  - PREMENSTRUAL SYNDROME [None]
